FAERS Safety Report 23620665 (Version 1)
Quarter: 2024Q1

REPORT INFORMATION
  Report Type: Spontaneous
  Country: US (occurrence: US)
  Receive Date: 20240312
  Receipt Date: 20240312
  Transmission Date: 20240410
  Serious: No
  Sender: FDA-Public Use
  Company Number: US-BRISTOL-MYERS SQUIBB COMPANY-2024-038796

PATIENT
  Age: 29 Year
  Sex: Female

DRUGS (1)
  1. TRIAMCINOLONE ACETONIDE [Suspect]
     Active Substance: TRIAMCINOLONE ACETONIDE
     Indication: Uveitis
     Dosage: SUB-TENON TRIAMCINOLONE

REACTIONS (2)
  - Hypopigmentation of eyelid [Recovered/Resolved]
  - Injection site discolouration [Recovered/Resolved]
